FAERS Safety Report 25548215 (Version 2)
Quarter: 2025Q3

REPORT INFORMATION
  Report Type: Report from Study
  Country: US (occurrence: US)
  Receive Date: 20250714
  Receipt Date: 20250722
  Transmission Date: 20251020
  Serious: Yes (Other)
  Sender: AUROBINDO
  Company Number: US-AUROBINDO-AUR-APL-2025-035338

PATIENT
  Age: 30 Year
  Sex: Male
  Weight: 57.2 kg

DRUGS (7)
  1. FLUOROURACIL [Suspect]
     Active Substance: FLUOROURACIL
     Indication: Adenocarcinoma
     Route: 065
  2. URSODIOL [Suspect]
     Active Substance: URSODIOL
     Indication: Hepatocellular injury
     Route: 048
  3. URSODIOL [Suspect]
     Active Substance: URSODIOL
     Indication: Cholestasis
  4. SOYBEAN OIL [Concomitant]
     Active Substance: SOYBEAN OIL
     Indication: Product used for unknown indication
     Dosage: 0.61 GRAM PER KILOGRAM, ONCE A DAY
     Route: 065
  5. SOYBEAN OIL [Concomitant]
     Active Substance: SOYBEAN OIL
     Dosage: 0.35 GRAM PER KILOGRAM, ONCE A DAY
     Route: 065
  6. SODIUM CHLORIDE [Concomitant]
     Active Substance: SODIUM CHLORIDE
     Indication: Product used for unknown indication
     Route: 065
  7. DEXTROSE [Concomitant]
     Active Substance: DEXTROSE MONOHYDRATE
     Indication: Product used for unknown indication
     Route: 065

REACTIONS (1)
  - Drug ineffective [Unknown]
